FAERS Safety Report 5397428-2 (Version None)
Quarter: 2007Q3

REPORT INFORMATION
  Report Type: 
  Country: None (occurrence: None)
  Receive Date: 20070723
  Receipt Date: 20070723
  Transmission Date: 20080115
  Serious: No
  Sender: FDA-Public Use
  Company Number: None

PATIENT
  Age: 30 Year
  Sex: Male

DRUGS (1)
  1. PREGABALIN [Suspect]

REACTIONS (3)
  - HYPOAESTHESIA [None]
  - SWELLING FACE [None]
  - TRISMUS [None]
